FAERS Safety Report 17645952 (Version 1)
Quarter: 2020Q2

REPORT INFORMATION
  Report Type: Report from Study
  Country: US (occurrence: US)
  Receive Date: 20200408
  Receipt Date: 20200408
  Transmission Date: 20200713
  Serious: Yes (Death, Hospitalization)
  Sender: FDA-Public Use
  Company Number: US-EISAI MEDICAL RESEARCH-EC-2020-069207

PATIENT
  Age: 54 Year
  Sex: Male
  Weight: 105 kg

DRUGS (22)
  1. DALIRESP [Concomitant]
     Active Substance: ROFLUMILAST
  2. DOXYCYCLINE. [Concomitant]
     Active Substance: DOXYCYCLINE
  3. QVAR [Concomitant]
     Active Substance: BECLOMETHASONE DIPROPIONATE
  4. SPIRIVA [Concomitant]
     Active Substance: TIOTROPIUM BROMIDE MONOHYDRATE
  5. AZITHROMYCIN ANHYDROUS. [Concomitant]
     Active Substance: AZITHROMYCIN ANHYDROUS
  6. EVEROLIMUS. [Concomitant]
     Active Substance: EVEROLIMUS
  7. HYDRALAZINE [Concomitant]
     Active Substance: HYDRALAZINE HYDROCHLORIDE
  8. HYDROCODONE-HOMATROPINE [Concomitant]
  9. BENZONATATE. [Concomitant]
     Active Substance: BENZONATATE
  10. LENVIMA [Suspect]
     Active Substance: LENVATINIB
     Indication: RENAL CELL CARCINOMA
     Route: 048
     Dates: start: 20200120, end: 2020
  11. PREDNISONE. [Concomitant]
     Active Substance: PREDNISONE
  12. SYMBICORT [Concomitant]
     Active Substance: BUDESONIDE\FORMOTEROL FUMARATE DIHYDRATE
  13. LENVIMA [Suspect]
     Active Substance: LENVATINIB
     Indication: RENAL CANCER
  14. AMOXICILLIN. [Concomitant]
     Active Substance: AMOXICILLIN
  15. ATORVASTATIN [Concomitant]
     Active Substance: ATORVASTATIN
  16. LOMOTIL [Concomitant]
     Active Substance: ATROPINE SULFATE\DIPHENOXYLATE HYDROCHLORIDE
  17. SENNA [Concomitant]
     Active Substance: SENNA LEAF\SENNOSIDES\SENNOSIDES A AND B
  18. VENTOLIN [Concomitant]
     Active Substance: ALBUTEROL SULFATE
  19. FUROSEMIDE. [Concomitant]
     Active Substance: FUROSEMIDE
  20. ONDANSETRON [Concomitant]
     Active Substance: ONDANSETRON
  21. MONTELUCAST [Concomitant]
     Active Substance: MONTELUKAST SODIUM
  22. PERCOCET [Concomitant]
     Active Substance: ACETAMINOPHEN\OXYCODONE HYDROCHLORIDE

REACTIONS (5)
  - Decreased appetite [Unknown]
  - Pneumonia [Unknown]
  - Death [Fatal]
  - Bile duct obstruction [Recovering/Resolving]
  - Blood pressure increased [Recovering/Resolving]

NARRATIVE: CASE EVENT DATE: 201910
